FAERS Safety Report 4323956-4 (Version None)
Quarter: 2004Q1

REPORT INFORMATION
  Report Type: 
  Country: None (occurrence: None)
  Receive Date: 20040323
  Receipt Date: 20040302
  Transmission Date: 20041129
  Serious: Yes (Other)
  Sender: FDA-Public Use
  Company Number: JP-JNJFOC-20040304146

PATIENT
  Age: 74 Year
  Sex: Female

DRUGS (6)
  1. RISPERDAL [Suspect]
     Indication: SCHIZOPHRENIA
     Dosage: 2 MG, IN 1 DAY, ORAL
     Route: 048
     Dates: end: 20031216
  2. TRIHEXYPHENIDYL HCL [Suspect]
     Dosage: 4 MG, IN 1 DAY, ORAL
     Route: 048
     Dates: end: 20031216
  3. PROPIVERINE HYDROCHLORIDE (PROPIVERINE HYDROCHLORIDE) [Suspect]
     Indication: URINARY INCONTINENCE
     Dosage: 20 MG, IN 1 DAY, ORAL
     Route: 048
     Dates: end: 20031216
  4. CHLORPROMAZINE [Concomitant]
  5. SULPIRIDE (SULPIRIDE) [Concomitant]
  6. LORMETAZEPAM (LORMETAZEPAM) [Concomitant]

REACTIONS (4)
  - CONDITION AGGRAVATED [None]
  - DRUG INTERACTION [None]
  - MENTAL DISORDER [None]
  - THROMBOCYTOPENIA [None]
